FAERS Safety Report 12576173 (Version 1)
Quarter: 2016Q3

REPORT INFORMATION
  Report Type: Report from Study
  Country: CA (occurrence: CA)
  Receive Date: 20160720
  Receipt Date: 20160720
  Transmission Date: 20161109
  Serious: Yes (Other)
  Sender: FDA-Public Use
  Company Number: CA-JNJFOC-20160510163

PATIENT
  Age: 26 Year
  Sex: Female
  Weight: 80.74 kg

DRUGS (1)
  1. REMICADE [Suspect]
     Active Substance: INFLIXIMAB
     Indication: CROHN^S DISEASE
     Route: 042

REACTIONS (2)
  - Tooth abscess [Recovering/Resolving]
  - Gingivitis [Recovered/Resolved]

NARRATIVE: CASE EVENT DATE: 20160506
